FAERS Safety Report 5748731-5 (Version None)
Quarter: 2008Q2

REPORT INFORMATION
  Report Type: 
  Country: None (occurrence: None)
  Receive Date: 20080521
  Receipt Date: 20080505
  Transmission Date: 20081010
  Serious: Yes (Hospitalization)
  Sender: FDA-Public Use
  Company Number: 8032572

PATIENT
  Age: 51 Year
  Sex: Male

DRUGS (2)
  1. KEPPRA [Suspect]
     Indication: EPILEPSY
     Dosage: 250 MG 2/D
     Dates: start: 20080401, end: 20080412
  2. CARBAMAZEPINE [Suspect]
     Indication: EPILEPSY
     Dosage: 400 MG 3/D A FEW YEARS

REACTIONS (4)
  - ATAXIA [None]
  - DRUG INTERACTION [None]
  - DRUG LEVEL INCREASED [None]
  - DYSARTHRIA [None]
